FAERS Safety Report 9350821 (Version 2)
Quarter: 2013Q2

REPORT INFORMATION
  Report Type: Report from Study
  Country: AU (occurrence: AU)
  Receive Date: 20130617
  Receipt Date: 20130624
  Transmission Date: 20140414
  Serious: Yes (Death, Other)
  Sender: FDA-Public Use
  Company Number: PHHY2013AU060978

PATIENT
  Age: 90 Year
  Sex: Male

DRUGS (10)
  1. ACLASTA [Suspect]
     Indication: OSTEOPOROTIC FRACTURE
     Dosage: 5 MG, UNK
     Route: 042
     Dates: start: 20100608
  2. ACLASTA [Suspect]
     Dosage: 5 MG, UNK
     Route: 042
     Dates: start: 20110608
  3. ACLASTA [Suspect]
     Dosage: 5 MG, UNK
     Route: 042
     Dates: start: 20120621
  4. ASPIRIN [Concomitant]
     Indication: ANGIOPATHY
     Dosage: 100 MG, UNK
     Route: 048
  5. COVERSIL [Concomitant]
     Indication: HYPERTENSION
     Dosage: 5 G, UNK
     Route: 048
  6. CALCIUM [Concomitant]
     Indication: OSTEOPOROSIS
     Dosage: 1 DF, UNK
     Route: 048
  7. CALCIUM [Concomitant]
     Dosage: 1 DF, UNK
     Route: 048
     Dates: end: 20120801
  8. VITAMIN D [Concomitant]
     Indication: OSTEOPOROSIS
     Dosage: 1 DF, UNK
     Route: 048
  9. XERGIC [Concomitant]
     Indication: DERMATITIS ALLERGIC
     Dosage: 120 MG, UNK
     Route: 048
  10. ANTIHISTAMINICS [Concomitant]

REACTIONS (3)
  - Death [Fatal]
  - Fall [Unknown]
  - Femoral neck fracture [Unknown]
